FAERS Safety Report 12728251 (Version 1)
Quarter: 2016Q3

REPORT INFORMATION
  Report Type: Spontaneous
  Country: US (occurrence: US)
  Receive Date: 20160907
  Receipt Date: 20160907
  Transmission Date: 20161109
  Serious: Yes (Other)
  Sender: FDA-Public Use
  Company Number: None

PATIENT
  Sex: Female
  Weight: 0 kg

DRUGS (1)
  1. REPATHA [Suspect]
     Active Substance: EVOLOCUMAB
     Indication: HYPERLIPIDAEMIA
     Dosage: REPATHA 140MG/ML - 1 EVERY 2 WEEKS - SUBCUTANEOUS
     Route: 058
     Dates: start: 20160314

REACTIONS (2)
  - Spider vein [None]
  - Dizziness [None]
